FAERS Safety Report 25551174 (Version 2)
Quarter: 2025Q4

REPORT INFORMATION
  Report Type: Spontaneous
  Country: CA (occurrence: CA)
  Receive Date: 20250714
  Receipt Date: 20251106
  Transmission Date: 20260118
  Serious: Yes (Other)
  Sender: MERCK SHARP & DOHME LLC
  Company Number: CA-AstrazenecaRSG-1006-D7632C00001(Prod)000001

PATIENT
  Age: 77 Year
  Sex: Female
  Weight: 69 kg

DRUGS (19)
  1. PEMBROLIZUMAB [Suspect]
     Active Substance: PEMBROLIZUMAB
     Indication: Non-small cell lung cancer
     Dosage: 200 MG, DAY 1 OF EVERY CYCLE
     Route: 050
     Dates: start: 20250523, end: 20250612
  2. PEMBROLIZUMAB [Suspect]
     Active Substance: PEMBROLIZUMAB
     Indication: Non-small cell lung cancer
     Dosage: 200 MILLIGRAM, DAY 1 OF EVERY CYCLE
     Route: 050
     Dates: start: 20250603, end: 20250603
  3. PEMBROLIZUMAB [Suspect]
     Active Substance: PEMBROLIZUMAB
     Indication: Non-small cell lung cancer
     Dosage: 200 MG
     Route: 065
     Dates: start: 20250523, end: 20250523
  4. PEMBROLIZUMAB [Suspect]
     Active Substance: PEMBROLIZUMAB
     Indication: Non-small cell lung cancer
     Dosage: 200 MG
     Route: 065
     Dates: start: 20250703, end: 20250703
  5. PEMBROLIZUMAB [Suspect]
     Active Substance: PEMBROLIZUMAB
     Indication: Non-small cell lung cancer
     Dosage: 200 MG
     Route: 065
     Dates: start: 20250612, end: 20250612
  6. PREDNISONE [Concomitant]
     Active Substance: PREDNISONE
     Indication: Myocarditis
     Dosage: 40 MG, QD
     Route: 050
     Dates: start: 20250815
  7. PREDNISONE [Concomitant]
     Active Substance: PREDNISONE
     Indication: Myocarditis
     Dosage: 40 MG, QD
     Route: 050
     Dates: start: 20250723, end: 20250731
  8. PREDNISONE [Concomitant]
     Active Substance: PREDNISONE
     Indication: Myocarditis
     Dosage: 60 MG, QD
     Route: 050
     Dates: start: 20250801, end: 20250807
  9. PREDNISONE [Concomitant]
     Active Substance: PREDNISONE
     Indication: Myocarditis
     Dosage: 50 MG, QD
     Route: 050
     Dates: start: 20250808, end: 20250814
  10. ERGOCALCIFEROL [Concomitant]
     Active Substance: ERGOCALCIFEROL
     Indication: Osteoporosis
     Dosage: 10000 INTERNATIONAL UNIT, 1 TIME PER WEEK
     Route: 050
     Dates: start: 1993
  11. RANITIDINE [Concomitant]
     Active Substance: RANITIDINE
     Indication: Product used for unknown indication
     Dosage: 150 MILLIGRAM, BID
     Route: 050
  12. LEVOTHYROXINE SODIUM [Concomitant]
     Active Substance: LEVOTHYROXINE SODIUM
     Indication: Hypothyroidism
     Dosage: 75 MICROGRAM, QD
     Route: 050
     Dates: start: 2005
  13. ACETAMINOPHEN [Concomitant]
     Active Substance: ACETAMINOPHEN
     Indication: Product used for unknown indication
     Dosage: TIME INTERVAL: AS NECESSARY: 500 MG, AS NEEDED
     Route: 050
  14. IRBESARTAN [Concomitant]
     Active Substance: IRBESARTAN
     Indication: Hypertension
     Dosage: 75 MILLIGRAM, QD
     Route: 050
     Dates: start: 2018
  15. ELIQUIS [Concomitant]
     Active Substance: APIXABAN
     Indication: Product used for unknown indication
     Dosage: 5 MILLIGRAM, BID
     Route: 050
     Dates: start: 20250704
  16. ELIQUIS [Concomitant]
     Active Substance: APIXABAN
     Indication: Product used for unknown indication
     Dosage: 5 MILLIGRAM, BID
     Route: 050
     Dates: start: 20250627, end: 20250704
  17. CALCIUM [CALCIUM CARBONATE;COLECALCIFEROL;INULIN] [Concomitant]
     Indication: Osteoporosis
     Dosage: 500 MILLIGRAM, QD
     Route: 050
     Dates: start: 1993
  18. SOLU-MEDROL [Concomitant]
     Active Substance: METHYLPREDNISOLONE SODIUM SUCCINATE
     Indication: Product used for unknown indication
     Dosage: 60 MG, SINGLE
     Route: 050
     Dates: start: 20250722, end: 20250722
  19. LEVETIRACETAM [Concomitant]
     Active Substance: LEVETIRACETAM
     Indication: Epilepsy
     Dosage: 500 MILLIGRAM, BID
     Route: 050
     Dates: start: 2017

REACTIONS (1)
  - Pulmonary embolism [Recovered/Resolved]

NARRATIVE: CASE EVENT DATE: 20250626
